FAERS Safety Report 6071798-4 (Version None)
Quarter: 2009Q1

REPORT INFORMATION
  Report Type: 
  Country: None (occurrence: None)
  Receive Date: 20090210
  Receipt Date: 20090130
  Transmission Date: 20090719
  Serious: Yes (Other)
  Sender: FDA-Public Use
  Company Number: PHHY2008JP33294

PATIENT
  Sex: Male
  Weight: 48 kg

DRUGS (7)
  1. NEORAL [Suspect]
     Indication: NEPHROTIC SYNDROME
     Dosage: 150 MG/DAY
     Route: 048
     Dates: start: 20080925
  2. STEROIDS NOS [Concomitant]
     Indication: NEPHROTIC SYNDROME
     Dosage: 40 MG/DAY
     Dates: start: 20080823
  3. PREDONINE [Concomitant]
     Dosage: 10 MG
     Route: 048
     Dates: start: 20081015
  4. PERSANTINE [Concomitant]
     Dosage: 75 MG
     Route: 048
     Dates: start: 20081015
  5. TAKEPRON [Concomitant]
     Dosage: 15 MG
     Route: 048
     Dates: start: 20081015
  6. ALENDRONATE SODIUM [Concomitant]
     Dosage: 35 MG
     Dates: start: 20081015
  7. BROTIZOLAM [Concomitant]
     Dosage: 0.5 MG
     Dates: start: 20081015

REACTIONS (1)
  - BONE MARROW FAILURE [None]
